FAERS Safety Report 17703257 (Version 1)
Quarter: 2020Q2

REPORT INFORMATION
  Report Type: Spontaneous
  Country: US (occurrence: US)
  Receive Date: 20200423
  Receipt Date: 20200423
  Transmission Date: 20200714
  Serious: No
  Sender: FDA-Public Use
  Company Number: US-ASTRAZENECA-2020SE52417

PATIENT
  Sex: Female
  Weight: 83.9 kg

DRUGS (3)
  1. BYDUREON [Suspect]
     Active Substance: EXENATIDE
     Indication: TYPE 2 DIABETES MELLITUS
     Route: 058
     Dates: start: 20200325
  2. LANTUS PEN [Concomitant]
     Indication: DIABETES MELLITUS
     Route: 058
  3. TRULICITY [Concomitant]
     Active Substance: DULAGLUTIDE
     Route: 065

REACTIONS (4)
  - Blood glucose increased [Unknown]
  - Product dose omission [Unknown]
  - Diabetes mellitus inadequate control [Unknown]
  - Device issue [Unknown]
